FAERS Safety Report 6047125-5 (Version None)
Quarter: 2009Q1

REPORT INFORMATION
  Report Type: 
  Country: None (occurrence: None)
  Receive Date: 20090122
  Receipt Date: 20090113
  Transmission Date: 20090719
  Serious: Yes (Hospitalization)
  Sender: FDA-Public Use
  Company Number: PHHY2009DE01303

PATIENT
  Age: 83 Year
  Sex: Male

DRUGS (7)
  1. VOLTAREN [Suspect]
     Indication: FALL
     Dosage: 140 MG/DAY
     Route: 048
     Dates: start: 20080716, end: 20080723
  2. FALITHROM ^HEXAL^ [Suspect]
     Indication: ATRIAL FIBRILLATION
     Dosage: 3 MG
     Route: 048
     Dates: start: 20050101, end: 20080723
  3. AMLODIPIN ^ORIFARM^ [Concomitant]
     Indication: HYPERTENSION
     Dosage: 5 MG/DAY
     Route: 048
  4. BISOPROLOL [Concomitant]
     Indication: HYPERTENSION
     Dosage: 5 MG/DAY
     Route: 048
  5. FOSINORM [Concomitant]
     Indication: HYPERTENSION
     Dosage: 10 MG/DAY
     Route: 048
  6. HCT ^CT-ARZNEIMITTEL^ [Concomitant]
     Indication: HYPERTENSION
     Dosage: 12.5 MG/DAY
     Route: 048
  7. SYMBICORT TURBUHALER ^DRACO^ [Concomitant]
     Indication: CHRONIC OBSTRUCTIVE PULMONARY DISEASE
     Dosage: 1 DF 2 RESPIRATORY/DAY

REACTIONS (1)
  - ULCER HAEMORRHAGE [None]
